FAERS Safety Report 7744307-9 (Version None)
Quarter: 2011Q3

REPORT INFORMATION
  Report Type: 
  Country: None (occurrence: None)
  Receive Date: 20110912
  Receipt Date: 20110905
  Transmission Date: 20111222
  Serious: Yes (Hospitalization)
  Sender: FDA-Public Use
  Company Number: IL-B.I. PHARMACEUTICALS,INC./RIDGEFIELD-2011-RD-00088AP

PATIENT
  Sex: Male
  Weight: 83.8 kg

DRUGS (2)
  1. TRIAL PROCEDURE [Suspect]
     Indication: TYPE 2 DIABETES MELLITUS
  2. BI 1356 [Suspect]
     Indication: TYPE 2 DIABETES MELLITUS
     Dosage: 5 MG
     Dates: start: 20110213

REACTIONS (1)
  - HYPOGLYCAEMIA [None]
